FAERS Safety Report 5373537-9 (Version None)
Quarter: 2007Q2

REPORT INFORMATION
  Report Type: 
  Country: None (occurrence: None)
  Receive Date: 20070628
  Receipt Date: 20070621
  Transmission Date: 20071010
  Serious: Yes (Other)
  Sender: FDA-Public Use
  Company Number: B0474076A

PATIENT
  Age: 70 Year
  Sex: Female
  Weight: 69.9 kg

DRUGS (4)
  1. LAMICTAL [Suspect]
     Indication: BIPOLAR DISORDER
     Dosage: 75MG PER DAY
     Route: 065
     Dates: start: 20061101
  2. WARFARIN SODIUM [Suspect]
     Dosage: 2MG UNKNOWN
     Route: 065
  3. NEXIUM [Concomitant]
     Dosage: 20MG IN THE MORNING
  4. XANAX [Concomitant]
     Dosage: 1.5MG PER DAY

REACTIONS (2)
  - DRUG INTERACTION [None]
  - INTERNATIONAL NORMALISED RATIO INCREASED [None]
